FAERS Safety Report 25681934 (Version 1)
Quarter: 2025Q3

REPORT INFORMATION
  Report Type: Spontaneous
  Country: US (occurrence: None)
  Receive Date: 20250814
  Receipt Date: 20250814
  Transmission Date: 20251021
  Serious: Yes (Disabling)
  Sender: FDA-CTU
  Company Number: None

PATIENT
  Age: 50 Year
  Sex: Female
  Weight: 65.25 kg

DRUGS (2)
  1. LAMICTAL [Suspect]
     Active Substance: LAMOTRIGINE
  2. ZOLOFT [Suspect]
     Active Substance: SERTRALINE HYDROCHLORIDE

REACTIONS (13)
  - Feeling abnormal [None]
  - Sensory disturbance [None]
  - Abnormal dreams [None]
  - Female orgasmic disorder [None]
  - Anhedonia [None]
  - Sexual dysfunction [None]
  - Physical examination abnormal [None]
  - Dysuria [None]
  - Adverse drug reaction [None]
  - Iatrogenic injury [None]
  - Depression [None]
  - Road traffic accident [None]
  - Fatigue [None]

NARRATIVE: CASE EVENT DATE: 20190611
